FAERS Safety Report 17671798 (Version 1)
Quarter: 2020Q2

REPORT INFORMATION
  Report Type: Spontaneous
  Country: ES (occurrence: ES)
  Receive Date: 20200415
  Receipt Date: 20200415
  Transmission Date: 20200713
  Serious: Yes (Other)
  Sender: FDA-Public Use
  Company Number: ES-SA-2020SA096800

PATIENT
  Age: 72 Year
  Sex: Male
  Weight: 95 kg

DRUGS (1)
  1. ZALTRAP [Suspect]
     Active Substance: ZIV-AFLIBERCEPT
     Indication: ADENOCARCINOMA OF COLON
     Dosage: 2 MG/KG, QOW
     Route: 042
     Dates: start: 20170306, end: 20170413

REACTIONS (3)
  - Anal fissure [Recovered/Resolved]
  - Rectal haemorrhage [Recovered/Resolved]
  - Hypertensive crisis [Recovered/Resolved]

NARRATIVE: CASE EVENT DATE: 20170306
